FAERS Safety Report 4536098-X (Version None)
Quarter: 2004Q4

REPORT INFORMATION
  Report Type: 
  Country: None (occurrence: None)
  Receive Date: 20041222
  Receipt Date: 20041222
  Transmission Date: 20050328
  Serious: No
  Sender: FDA-Public Use
  Company Number: None

PATIENT
  Age: 73 Year
  Sex: Male
  Weight: 77.1115 kg

DRUGS (3)
  1. PHYTONADIONE [Suspect]
     Indication: COAGULOPATHY
     Dosage: 0.1 MG X 1 SQ
     Route: 058
     Dates: start: 20040825
  2. PHYTONADIONE [Suspect]
     Indication: PREOPERATIVE CARE
     Dosage: 0.1 MG X 1 SQ
     Route: 058
     Dates: start: 20040825
  3. PHYTONADIONE [Suspect]
     Indication: PROPHYLAXIS
     Dosage: 0.1 MG X 1 SQ
     Route: 058
     Dates: start: 20040825

REACTIONS (1)
  - ANAPHYLACTIC REACTION [None]
